FAERS Safety Report 5808482-5 (Version None)
Quarter: 2008Q3

REPORT INFORMATION
  Report Type: 
  Country: None (occurrence: None)
  Receive Date: 20080710
  Receipt Date: 20080710
  Transmission Date: 20090109
  Serious: Yes (Hospitalization, Other)
  Sender: FDA-Public Use
  Company Number: None

PATIENT
  Age: 52 Year
  Sex: Male
  Weight: 131.5431 kg

DRUGS (1)
  1. MORPHINE SULFATE [Suspect]
     Indication: PAIN MANAGEMENT
     Dosage: 2 TABLETS 60MG. 2 TIMES A DAY
     Dates: start: 20080515, end: 20080606

REACTIONS (12)
  - AMNESIA [None]
  - CHEST PAIN [None]
  - CONSTIPATION [None]
  - DYSURIA [None]
  - ENDOSCOPY GASTROINTESTINAL ABNORMAL [None]
  - HYPOPHAGIA [None]
  - NAUSEA [None]
  - NO THERAPEUTIC RESPONSE [None]
  - PHARMACEUTICAL PRODUCT COMPLAINT [None]
  - POOR QUALITY DRUG ADMINISTERED [None]
  - RETCHING [None]
  - VOMITING [None]
